FAERS Safety Report 4417229-9 (Version None)
Quarter: 2004Q3

REPORT INFORMATION
  Report Type: 
  Country: None (occurrence: None)
  Receive Date: 20040806
  Receipt Date: 20040729
  Transmission Date: 20050211
  Serious: Yes (Disabling)
  Sender: FDA-Public Use
  Company Number: JP-ROCHE-376371

PATIENT
  Age: 67 Year
  Sex: Male

DRUGS (2)
  1. TAMIFLU [Suspect]
     Route: 048
     Dates: start: 20030114, end: 20030118
  2. CALONAL [Concomitant]
     Route: 048
     Dates: start: 20030114

REACTIONS (8)
  - ASTHMA [None]
  - CAROTID ARTERY STENOSIS [None]
  - DYSPNOEA [None]
  - ENCEPHALOPATHY [None]
  - HALLUCINATION [None]
  - HEADACHE [None]
  - OBSTRUCTIVE AIRWAYS DISORDER [None]
  - RESPIRATORY FAILURE [None]
